FAERS Safety Report 5877301-3 (Version None)
Quarter: 2008Q3

REPORT INFORMATION
  Report Type: 
  Country: None (occurrence: None)
  Receive Date: 20080910
  Receipt Date: 20080905
  Transmission Date: 20090109
  Serious: Yes (Hospitalization)
  Sender: FDA-Public Use
  Company Number: IT-MERCK-0808ITA00018

PATIENT
  Age: 67 Year
  Sex: Female

DRUGS (6)
  1. VYTORIN [Suspect]
     Indication: CORONARY ANGIOPLASTY
     Route: 048
     Dates: start: 20080727, end: 20080810
  2. CLOPIDOGREL BISULFATE [Suspect]
     Indication: CORONARY ANGIOPLASTY
     Route: 048
     Dates: start: 20080801
  3. ASPIRIN [Suspect]
     Indication: CORONARY ANGIOPLASTY
     Route: 048
     Dates: start: 20021104
  4. LANSOPRAZOLE [Concomitant]
     Route: 048
     Dates: start: 20080725
  5. ENALAPRIL MALEATE [Concomitant]
     Route: 048
     Dates: start: 20070503
  6. ALLOPURINOL [Concomitant]
     Route: 048
     Dates: start: 20080410

REACTIONS (3)
  - BLOOD AMYLASE INCREASED [None]
  - DIARRHOEA [None]
  - MELAENA [None]
